FAERS Safety Report 20645721 (Version 1)
Quarter: 2022Q1

REPORT INFORMATION
  Report Type: Spontaneous
  Country: US (occurrence: None)
  Receive Date: 20220328
  Receipt Date: 20220328
  Transmission Date: 20220423
  Serious: No
  Sender: FDA-Public Use
  Company Number: 2022A097136

PATIENT
  Age: 75 Year
  Sex: Male

DRUGS (2)
  1. CRESTOR [Suspect]
     Active Substance: ROSUVASTATIN CALCIUM
     Indication: Product used for unknown indication
     Route: 048
  2. OFEV [Suspect]
     Active Substance: NINTEDANIB
     Indication: Pulmonary fibrosis
     Route: 048
     Dates: start: 20210902

REACTIONS (14)
  - Diarrhoea [Not Recovered/Not Resolved]
  - Atrial fibrillation [Not Recovered/Not Resolved]
  - Haemorrhoids [Unknown]
  - Pulmonary function test abnormal [Recovering/Resolving]
  - Weight decreased [Unknown]
  - Blood pressure increased [Not Recovered/Not Resolved]
  - Arrhythmia [Not Recovered/Not Resolved]
  - Abdominal discomfort [Not Recovered/Not Resolved]
  - Gastrooesophageal reflux disease [Not Recovered/Not Resolved]
  - Constipation [Unknown]
  - Dyspnoea [Unknown]
  - Liver function test increased [Not Recovered/Not Resolved]
  - Nerve compression [Unknown]
  - Dizziness [Unknown]
